FAERS Safety Report 7346933-8 (Version None)
Quarter: 2011Q1

REPORT INFORMATION
  Report Type: 
  Country: None (occurrence: None)
  Receive Date: 20110311
  Receipt Date: 20110301
  Transmission Date: 20110831
  Serious: Yes (Other)
  Sender: FDA-Public Use
  Company Number: IT-JNJFOC-20110301243

PATIENT
  Age: 36 Year
  Sex: Female

DRUGS (6)
  1. METOCAL VIT D3 [Concomitant]
  2. REMICADE [Suspect]
     Route: 042
  3. PANTOPAN [Concomitant]
  4. DELTACORTENE [Concomitant]
  5. NEORAL [Concomitant]
  6. REMICADE [Suspect]
     Indication: BEHCET'S SYNDROME
     Route: 042

REACTIONS (3)
  - FLUSHING [None]
  - INFUSION RELATED REACTION [None]
  - LARYNGOSPASM [None]
